FAERS Safety Report 7611597-2 (Version None)
Quarter: 2011Q3

REPORT INFORMATION
  Report Type: 
  Country: None (occurrence: None)
  Receive Date: 20110715
  Receipt Date: 20110707
  Transmission Date: 20111222
  Serious: Yes (Death)
  Sender: FDA-Public Use
  Company Number: GB-VIIV HEALTHCARE LIMITED-B0730240A

PATIENT
  Sex: Male

DRUGS (6)
  1. CALCICHEW D3 FORTE [Concomitant]
     Dates: start: 20090114
  2. TAMSULOSIN HCL [Concomitant]
     Dates: start: 20101011
  3. TRUVADA [Suspect]
     Indication: HIV INFECTION
     Route: 048
     Dates: start: 20090707
  4. MARAVIROC [Suspect]
     Indication: HIV INFECTION
     Dosage: 300MG TWICE PER DAY
     Route: 048
     Dates: start: 20050802
  5. CREATINE [Concomitant]
     Dates: start: 20081101
  6. MELATONIN [Concomitant]
     Dates: start: 19980101

REACTIONS (1)
  - DEATH [None]
